FAERS Safety Report 11198598 (Version 1)
Quarter: 2015Q2

REPORT INFORMATION
  Report Type: Spontaneous
  Country: JP (occurrence: JP)
  Receive Date: 20150618
  Receipt Date: 20150618
  Transmission Date: 20150821
  Serious: Yes (Hospitalization)
  Sender: FDA-Public Use
  Company Number: JP-TEVA-570176ISR

PATIENT
  Age: 73 Year
  Sex: Female

DRUGS (5)
  1. PAROXETINE [Suspect]
     Active Substance: PAROXETINE\PAROXETINE HYDROCHLORIDE
     Dosage: 37.5 MILLIGRAM DAILY;
  2. PAROXETINE [Suspect]
     Active Substance: PAROXETINE\PAROXETINE HYDROCHLORIDE
     Indication: DEPRESSION
     Dosage: 50 MILLIGRAM DAILY; DOSAGE AT TIME OF ADMISSION
     Route: 065
  3. PAROXETINE [Suspect]
     Active Substance: PAROXETINE\PAROXETINE HYDROCHLORIDE
     Dosage: 50 MILLIGRAM DAILY;
  4. ZOLPIDEM [Suspect]
     Active Substance: ZOLPIDEM\ZOLPIDEM TARTRATE
     Dosage: 10 MILLIGRAM DAILY; (DOSAGE AT ADMISSION)
     Route: 065
  5. VALPROATE [Concomitant]
     Active Substance: VALPROATE SODIUM
     Indication: SYNCOPE
     Dosage: 400 MILLIGRAM DAILY;
     Route: 065

REACTIONS (3)
  - Hallucination, auditory [Recovered/Resolved]
  - Hearing impaired [Unknown]
  - Parasomnia [Recovered/Resolved]
